FAERS Safety Report 10027822 (Version 1)
Quarter: 2014Q1

REPORT INFORMATION
  Report Type: Spontaneous
  Country: JP (occurrence: JP)
  Receive Date: 20140321
  Receipt Date: 20140321
  Transmission Date: 20141002
  Serious: Yes (Hospitalization, Other)
  Sender: FDA-Public Use
  Company Number: JP-MERCK-1403JPN009963

PATIENT
  Age: 28 Year
  Sex: Male
  Weight: 81 kg

DRUGS (4)
  1. INTERFERON ALFA-2B [Suspect]
     Indication: HEPATITIS B
     Dosage: 6 MILLION UNITS, FOR CONSECUTIVE 2WEEKS FOLLOWED BY THE SAME DOAGE 3 TIMES A WEEK FOR 22 WEEKS
  2. INTERFERON ALFA-2B [Suspect]
     Indication: HEPATITIS C
  3. RIBAVIRIN [Suspect]
     Indication: HEPATITIS B
     Dosage: 800MG/DAY FOR 24WEEKS
     Route: 048
  4. RIBAVIRIN [Suspect]
     Indication: HEPATITIS C

REACTIONS (4)
  - Hepatitis [Recovering/Resolving]
  - Hepatic necrosis [Unknown]
  - Hepatic fibrosis [Unknown]
  - Liver disorder [Unknown]
